FAERS Safety Report 5501940-2 (Version None)
Quarter: 2007Q4

REPORT INFORMATION
  Report Type: 
  Country: None (occurrence: None)
  Receive Date: 20071030
  Receipt Date: 20071022
  Transmission Date: 20080405
  Serious: Yes (Hospitalization)
  Sender: FDA-Public Use
  Company Number: US-ROCHE-503101

PATIENT
  Age: 20 Year
  Sex: Female
  Weight: 44.5 kg

DRUGS (5)
  1. ACCUTANE [Suspect]
     Route: 048
     Dates: start: 19960718, end: 19961018
  2. ACCUTANE [Suspect]
     Dosage: DOSAGE REGIMEN REPORTED AS 1-2-1.
     Route: 048
     Dates: start: 19961018, end: 19961031
  3. ACCUTANE [Suspect]
     Route: 048
     Dates: start: 19980504, end: 19980803
  4. ACCUTANE [Suspect]
     Dosage: DOSAGE REGIMEN REPORTED AS 1-2-1.
     Route: 048
     Dates: start: 19980803, end: 19980922
  5. ACCUTANE [Suspect]
     Route: 048
     Dates: start: 19980922

REACTIONS (7)
  - ACNE [None]
  - ANAEMIA [None]
  - COLITIS [None]
  - COLITIS ULCERATIVE [None]
  - EYE PAIN [None]
  - INFLAMMATORY BOWEL DISEASE [None]
  - INTESTINAL OBSTRUCTION [None]
